FAERS Safety Report 11501272 (Version 4)
Quarter: 2015Q4

REPORT INFORMATION
  Report Type: Spontaneous
  Country: DE (occurrence: DE)
  Receive Date: 20150914
  Receipt Date: 20151124
  Transmission Date: 20160304
  Serious: Yes (Hospitalization)
  Sender: FDA-Public Use
  Company Number: DE-DEP_12605_2015

PATIENT
  Sex: Male
  Weight: 99 kg

DRUGS (15)
  1. MAGNESIUM VERLA /00648601/ [Concomitant]
     Active Substance: MAGNESIUM
     Dosage: DF, 1-0-1
  2. CPS (CALCIUM POLYSTYRENE SULFONATE) [Concomitant]
     Dosage: DF, 1-0-1
  3. FOSTER /00500401/ (PIROXICAM) [Concomitant]
     Dosage: 100/60 MCG, 1-0-1
     Route: 055
  4. SALBUTAMOL [Concomitant]
     Active Substance: ALBUTEROL
     Indication: DYSPNOEA
     Dosage: AS NEEDED
     Route: 055
  5. OMEPRAZOLE /00661201/ [Concomitant]
     Dosage: 1-0-0
  6. ASPIRIN. [Concomitant]
     Active Substance: ASPIRIN
     Dosage: 0-1-0
  7. SPIRIVA [Concomitant]
     Active Substance: TIOTROPIUM BROMIDE MONOHYDRATE
     Dosage: DF, 1-0-0
     Route: 055
  8. SIMVASTATIN. [Concomitant]
     Active Substance: SIMVASTATIN
     Dosage: 0-0-1
  9. LOSARTAN. [Concomitant]
     Active Substance: LOSARTAN
     Dosage: 1-0-0
  10. DILTIAZEM [Concomitant]
     Active Substance: DILTIAZEM
     Dosage: 1-0-1
  11. TAMSULOSIN [Concomitant]
     Active Substance: TAMSULOSIN
     Dosage: 1-0-0
  12. ACICLOVIR [Concomitant]
     Active Substance: ACYCLOVIR
     Dosage: 1-1-1
  13. HYDROMORPHONE [Concomitant]
     Active Substance: HYDROMORPHONE
     Dosage: 1-0-1
  14. NOVALGIN [Concomitant]
     Active Substance: METAMIZOLE SODIUM
     Dosage: 1-1-1-1
  15. PALEXIA [Suspect]
     Active Substance: TAPENTADOL HYDROCHLORIDE
     Indication: BACK PAIN
     Route: 048
     Dates: start: 201205

REACTIONS (1)
  - Plasma cell myeloma [Unknown]

NARRATIVE: CASE EVENT DATE: 2015
